FAERS Safety Report 7042441-2 (Version None)
Quarter: 2010Q4

REPORT INFORMATION
  Report Type: 
  Country: None (occurrence: None)
  Receive Date: 20101013
  Receipt Date: 20100708
  Transmission Date: 20110411
  Serious: No
  Sender: FDA-Public Use
  Company Number: US-ASTRAZENECA-2010SE32013

PATIENT
  Sex: Female

DRUGS (10)
  1. SYMBICORT [Suspect]
     Dosage: 160/4.5
     Route: 055
  2. PROAIR HFA [Concomitant]
     Dosage: DAILY
  3. IPRATROPIUM BROMIDE [Concomitant]
     Dosage: DAILY
  4. ALBUTEROL [Concomitant]
     Dosage: DAILY
  5. SINGULAIR [Concomitant]
     Dosage: DAILY
  6. FLUTICASONE PROPIONATE [Concomitant]
     Dosage: DAILY
  7. TRIAMTERENE HCTZ CP [Concomitant]
     Dosage: DAILY
  8. CLORAZEPATE DIPOTASSIUM [Concomitant]
     Dosage: DAILY
  9. ZYRTEC [Concomitant]
     Dosage: DAILY
  10. LESSINA [Concomitant]
     Indication: CONTRACEPTION

REACTIONS (1)
  - DYSPNOEA [None]
